FAERS Safety Report 15100778 (Version 1)
Quarter: 2018Q3

REPORT INFORMATION
  Report Type: Spontaneous
  Country: US (occurrence: US)
  Receive Date: 20180703
  Receipt Date: 20180703
  Transmission Date: 20181010
  Serious: No
  Sender: FDA-Public Use
  Company Number: US-TEVA-2018-US-917588

PATIENT
  Sex: Female
  Weight: 81.6 kg

DRUGS (6)
  1. METOPROLOL. [Suspect]
     Active Substance: METOPROLOL
     Route: 065
  2. TREPROSTINIL [Suspect]
     Active Substance: TREPROSTINIL
     Dosage: 13 MILLIGRAM DAILY;
     Route: 048
  3. TREPROSTINIL [Suspect]
     Active Substance: TREPROSTINIL
     Indication: PULMONARY HYPERTENSION
     Dosage: 13 MILLIGRAM DAILY;
     Route: 048
     Dates: start: 20170815
  4. TREPROSTINIL [Suspect]
     Active Substance: TREPROSTINIL
     Dosage: 13 MILLIGRAM DAILY;
     Route: 048
  5. TRACLEER [Concomitant]
     Active Substance: BOSENTAN
  6. ADCIRCA [Concomitant]
     Active Substance: TADALAFIL

REACTIONS (4)
  - Fatigue [Unknown]
  - Heart rate decreased [Unknown]
  - Hypotension [Unknown]
  - Dizziness [Unknown]
